FAERS Safety Report 7582706-9 (Version None)
Quarter: 2011Q2

REPORT INFORMATION
  Report Type: 
  Country: None (occurrence: None)
  Receive Date: 20110630
  Receipt Date: 20110628
  Transmission Date: 20111010
  Serious: Yes (Other)
  Sender: FDA-Public Use
  Company Number: US-PFIZER INC-2011144236

PATIENT
  Age: 88 Year
  Sex: Female
  Weight: 53.968 kg

DRUGS (4)
  1. VITAMIN B-12 [Concomitant]
     Dosage: UNK
  2. NEURONTIN [Suspect]
     Indication: PAIN IN EXTREMITY
     Dosage: 300 MG, 3X/DAY
     Route: 048
  3. NEURONTIN [Suspect]
     Indication: HYPOAESTHESIA
  4. CALCIUM [Concomitant]
     Dosage: UNK

REACTIONS (4)
  - GASTROINTESTINAL DISORDER [None]
  - EYE DISORDER [None]
  - VISUAL IMPAIRMENT [None]
  - WEIGHT INCREASED [None]
